FAERS Safety Report 5608762-2 (Version None)
Quarter: 2008Q1

REPORT INFORMATION
  Report Type: 
  Country: None (occurrence: None)
  Receive Date: 20080131
  Receipt Date: 20080122
  Transmission Date: 20080703
  Serious: Yes (Hospitalization)
  Sender: FDA-Public Use
  Company Number: FR-JNJFOC-20080105019

PATIENT
  Sex: Female

DRUGS (9)
  1. DURAGESIC-100 [Suspect]
     Indication: BACK PAIN
     Route: 062
     Dates: start: 20071121, end: 20071123
  2. KARDEGIC [Concomitant]
     Route: 065
  3. TRINIPATCH [Concomitant]
     Route: 065
  4. LYTOS [Concomitant]
     Route: 065
  5. TIAPRIDAL [Concomitant]
     Route: 065
  6. LEXOMIL [Concomitant]
     Route: 065
  7. LEVOTHYROX [Concomitant]
     Route: 065
  8. ALLOPURINOL [Concomitant]
     Route: 065
  9. IMOVANE [Concomitant]
     Route: 065

REACTIONS (3)
  - ALTERED STATE OF CONSCIOUSNESS [None]
  - COMA [None]
  - MIOSIS [None]
